FAERS Safety Report 7249110-4 (Version None)
Quarter: 2011Q1

REPORT INFORMATION
  Report Type: 
  Country: None (occurrence: None)
  Receive Date: 20110121
  Receipt Date: 20110121
  Transmission Date: 20110831
  Serious: No
  Sender: FDA-Public Use
  Company Number: None

PATIENT
  Age: 59 Year
  Sex: Female
  Weight: 58.0604 kg

DRUGS (1)
  1. FLUTICASONE PROPIONATE [Suspect]
     Indication: MULTIPLE ALLERGIES
     Dosage: ONE SPRAY ONCE DAILY NASAL
     Route: 045
     Dates: start: 20101122, end: 20101123

REACTIONS (4)
  - ERYTHEMA [None]
  - PRODUCT SUBSTITUTION ISSUE [None]
  - SWELLING FACE [None]
  - SKIN ATROPHY [None]
